FAERS Safety Report 19772287 (Version 1)
Quarter: 2021Q3

REPORT INFORMATION
  Report Type: Spontaneous
  Country: CN (occurrence: CN)
  Receive Date: 20210831
  Receipt Date: 20210831
  Transmission Date: 20211014
  Serious: Yes (Hospitalization)
  Sender: FDA-Public Use
  Company Number: CN-PFIZER INC-202101083814

PATIENT
  Age: 65 Year
  Sex: Female
  Weight: 49.8 kg

DRUGS (1)
  1. CELEBREX [Suspect]
     Active Substance: CELECOXIB
     Indication: ARTHRALGIA
     Dosage: 0.2 G, 1X/DAY
     Route: 048
     Dates: start: 20210327, end: 20210411

REACTIONS (7)
  - Decreased appetite [Recovered/Resolved]
  - Blood bilirubin increased [Recovered/Resolved]
  - Nausea [Recovered/Resolved]
  - Drug-induced liver injury [Recovering/Resolving]
  - Asthenia [Recovered/Resolved]
  - Hepatic function abnormal [Recovered/Resolved]
  - Vomiting [Recovered/Resolved]

NARRATIVE: CASE EVENT DATE: 20210427
